FAERS Safety Report 8514666-8 (Version None)
Quarter: 2012Q3

REPORT INFORMATION
  Report Type: 
  Country: None (occurrence: None)
  Receive Date: 20120712
  Receipt Date: 20120712
  Transmission Date: 20120928
  Serious: Yes (Life-Threatening, Hospitalization)
  Sender: FDA-Public Use
  Company Number: None

PATIENT
  Age: 72 Year
  Sex: Male
  Weight: 75 kg

DRUGS (1)
  1. VORINOSTAT [Suspect]
     Indication: ADENOCARCINOMA PANCREAS
     Dosage: 200-300MG QD
     Dates: start: 20111205, end: 20120709

REACTIONS (4)
  - NAUSEA [None]
  - FATIGUE [None]
  - VARICES OESOPHAGEAL [None]
  - HAEMATEMESIS [None]
